FAERS Safety Report 7399967-1 (Version None)
Quarter: 2011Q2

REPORT INFORMATION
  Report Type: 
  Country: None (occurrence: None)
  Receive Date: 20110407
  Receipt Date: 20110325
  Transmission Date: 20111010
  Serious: Yes (Hospitalization, Other)
  Sender: FDA-Public Use
  Company Number: FR-JNJFOC-20110311377

PATIENT
  Age: 77 Year
  Sex: Female

DRUGS (10)
  1. LOVENOX [Concomitant]
  2. COVERSYL [Concomitant]
  3. LASIX [Concomitant]
  4. HALDOL [Suspect]
     Indication: PRODUCT USED FOR UNKNOWN INDICATION
     Route: 048
  5. LYSANXIA [Interacting]
     Indication: PRODUCT USED FOR UNKNOWN INDICATION
     Route: 048
  6. XATRAL [Concomitant]
  7. DAFALGAN [Concomitant]
     Route: 048
  8. TRANXENE [Interacting]
     Indication: PRODUCT USED FOR UNKNOWN INDICATION
     Route: 048
  9. IMOVANE [Interacting]
     Indication: PRODUCT USED FOR UNKNOWN INDICATION
     Route: 048
  10. TOPALGIC [Interacting]
     Indication: PRODUCT USED FOR UNKNOWN INDICATION
     Route: 048

REACTIONS (8)
  - HYPERCAPNIA [None]
  - AGGRESSION [None]
  - SOMNOLENCE [None]
  - TOXICITY TO VARIOUS AGENTS [None]
  - DRUG INTERACTION [None]
  - RESPIRATORY DEPRESSION [None]
  - CONFUSIONAL STATE [None]
  - HYPOXIA [None]
